FAERS Safety Report 4890936-X (Version None)
Quarter: 2005Q4

REPORT INFORMATION
  Report Type: 
  Country: None (occurrence: None)
  Receive Date: 20051220
  Receipt Date: 20051110
  Transmission Date: 20060501
  Serious: Yes (Other)
  Sender: FDA-Public Use
  Company Number: 424657

PATIENT
  Sex: Female

DRUGS (1)
  1. BONIVA [Suspect]
     Dosage: 1 PER MONTH

REACTIONS (5)
  - EAR CONGESTION [None]
  - JOINT CREPITATION [None]
  - NECK PAIN [None]
  - PAIN [None]
  - PAIN IN JAW [None]
